FAERS Safety Report 13759037 (Version 1)
Quarter: 2017Q3

REPORT INFORMATION
  Report Type: Report from Study
  Country: US (occurrence: US)
  Receive Date: 20170717
  Receipt Date: 20170717
  Transmission Date: 20171127
  Serious: Yes (Hospitalization, Other)
  Sender: FDA-Public Use
  Company Number: US-GILEAD-2017-0267176

PATIENT
  Age: 78 Year
  Sex: Female

DRUGS (24)
  1. SUCRALFATE. [Concomitant]
     Active Substance: SUCRALFATE
  2. ELIQUIS [Concomitant]
     Active Substance: APIXABAN
  3. LIPITOR [Concomitant]
     Active Substance: ATORVASTATIN CALCIUM
  4. FLONASE                            /00908302/ [Concomitant]
     Active Substance: MOMETASONE FUROATE
  5. HYDROCODONE BITARTRATE AND ACETAMINOPHEN [Concomitant]
     Active Substance: ACETAMINOPHEN\HYDROCODONE BITARTRATE
  6. LOSARTAN/HCTZ [Concomitant]
     Active Substance: HYDROCHLOROTHIAZIDE\LOSARTAN
  7. ASPIRIN                            /00002701/ [Concomitant]
     Active Substance: ASPIRIN
  8. CRYSELLE [Concomitant]
     Active Substance: ETHINYL ESTRADIOL\NORGESTREL
  9. XALATAN [Concomitant]
     Active Substance: LATANOPROST
  10. DEMADEX [Concomitant]
     Active Substance: TORSEMIDE
  11. AMBRISENTAN [Suspect]
     Active Substance: AMBRISENTAN
     Indication: PULMONARY HYPERTENSION
     Dosage: 5 MG, QD
     Route: 065
     Dates: start: 20170224, end: 20170629
  12. ADCIRCA [Suspect]
     Active Substance: TADALAFIL
     Indication: PULMONARY HYPERTENSION
     Dosage: 40 MG, QD
     Route: 065
     Dates: start: 20170314, end: 20170629
  13. XANAX [Concomitant]
     Active Substance: ALPRAZOLAM
  14. POTASSIUM [Concomitant]
     Active Substance: POTASSIUM
  15. WARFARIN [Concomitant]
     Active Substance: WARFARIN
  16. LIDOCAINE                          /00033402/ [Concomitant]
     Active Substance: LIDOCAINE
  17. SPIRONOLACTONE. [Concomitant]
     Active Substance: SPIRONOLACTONE
  18. HYZAAR [Concomitant]
     Active Substance: HYDROCHLOROTHIAZIDE\LOSARTAN POTASSIUM
  19. NITROGLYCERIN. [Concomitant]
     Active Substance: NITROGLYCERIN
  20. ALPRAZOLAM. [Concomitant]
     Active Substance: ALPRAZOLAM
  21. LATANOPROST. [Concomitant]
     Active Substance: LATANOPROST
  22. CRYSELLE [Concomitant]
     Active Substance: ETHINYL ESTRADIOL\NORGESTREL
  23. BRIMONIDINE [Concomitant]
     Active Substance: BRIMONIDINE TARTRATE
  24. COENZYME Q10 [Concomitant]
     Active Substance: UBIDECARENONE

REACTIONS (8)
  - Oedema peripheral [Recovered/Resolved]
  - Abdominal discomfort [Not Recovered/Not Resolved]
  - Cough [Not Recovered/Not Resolved]
  - Unevaluable event [Unknown]
  - Cardiac failure congestive [Unknown]
  - Dyspnoea [Not Recovered/Not Resolved]
  - Flushing [Not Recovered/Not Resolved]
  - Decreased appetite [Not Recovered/Not Resolved]

NARRATIVE: CASE EVENT DATE: 20170331
